FAERS Safety Report 6418344-0 (Version None)
Quarter: 2009Q4

REPORT INFORMATION
  Report Type: 
  Country: None (occurrence: None)
  Receive Date: 20091028
  Receipt Date: 20091018
  Transmission Date: 20100525
  Serious: Yes (Other)
  Sender: FDA-Public Use
  Company Number: US-AMGEN-QUU369805

PATIENT
  Sex: Female

DRUGS (7)
  1. ENBREL [Suspect]
     Indication: RHEUMATOID ARTHRITIS
     Dates: start: 19981201
  2. MESALAMINE [Concomitant]
  3. SYNTHROID [Concomitant]
  4. UNSPECIFIED ANTIHYPERTENSIVE AGENT [Concomitant]
  5. NEXIUM [Concomitant]
  6. CRESTOR [Concomitant]
  7. UNSPECIFIED MEDICATION [Concomitant]

REACTIONS (7)
  - COLITIS ULCERATIVE [None]
  - DRUG TOXICITY [None]
  - HYPERTENSION [None]
  - INJECTION SITE PAIN [None]
  - RENAL FAILURE ACUTE [None]
  - RENAL FAILURE CHRONIC [None]
  - UPPER RESPIRATORY TRACT INFECTION [None]
